FAERS Safety Report 21837006 (Version 6)
Quarter: 2023Q1

REPORT INFORMATION
  Report Type: Report from Study
  Country: CA (occurrence: None)
  Receive Date: 20230109
  Receipt Date: 20230207
  Transmission Date: 20230417
  Serious: Yes (Hospitalization)
  Sender: FDA-Public Use
  Company Number: CA-ROCHE-3254232

PATIENT
  Age: 56 Year
  Sex: Male
  Weight: 102.4 kg

DRUGS (32)
  1. OCRELIZUMAB [Suspect]
     Active Substance: OCRELIZUMAB
     Indication: Primary progressive multiple sclerosis
     Dosage: NEXT INFUSION ON 02/JAN/2014, 02/JUN/2014, 02/NOV/2015, 04/JUL/2013, 07/MAY/2015, 14/JAN/2013, 16/DE
     Route: 042
     Dates: start: 20141201, end: 20141201
  2. OCRELIZUMAB [Suspect]
     Active Substance: OCRELIZUMAB
     Dosage: NEXT INFUSION ON 17/AUG/2012 (200 ML), 27/FEB/2012 (200 ML), 30/JUL/2012 (200 ML)
     Route: 042
     Dates: start: 20120213, end: 20160410
  3. OCRELIZUMAB [Suspect]
     Active Substance: OCRELIZUMAB
     Indication: Primary progressive multiple sclerosis
     Dosage: NEXT INFUSION ON: 06/OCT/2016, 19/SEP/2016, 25/APR/2016
     Route: 042
     Dates: start: 20160411, end: 20160411
  4. OCRELIZUMAB [Suspect]
     Active Substance: OCRELIZUMAB
     Route: 042
     Dates: start: 20210503, end: 20210503
  5. OCRELIZUMAB [Suspect]
     Active Substance: OCRELIZUMAB
     Dosage: NEXT INFUSION ON: 08/JUN/2020, 15/FEB/2018, 16/DEC/2019, 16/NOV/2020, 17/JAN/2019, 31/AUG/2017
     Route: 042
     Dates: start: 20190704, end: 20190704
  6. OCRELIZUMAB [Suspect]
     Active Substance: OCRELIZUMAB
     Route: 042
     Dates: start: 20220407, end: 20220407
  7. OCRELIZUMAB [Suspect]
     Active Substance: OCRELIZUMAB
     Dosage: NEXT INFUSION ON: 30/MAR/2017
     Route: 042
     Dates: start: 20170316, end: 20170316
  8. OCRELIZUMAB [Suspect]
     Active Substance: OCRELIZUMAB
     Route: 042
     Dates: start: 20211021, end: 20211021
  9. OCRELIZUMAB [Suspect]
     Active Substance: OCRELIZUMAB
     Route: 042
     Dates: start: 20220922, end: 20220922
  10. ACIDOPHILUS [Concomitant]
     Active Substance: LACTOBACILLUS ACIDOPHILUS
     Indication: Prophylaxis
     Route: 048
     Dates: start: 201809
  11. ACIDOPHILUS [Concomitant]
     Active Substance: LACTOBACILLUS ACIDOPHILUS
     Dosage: 3 TABLETS
     Dates: start: 20180528, end: 20180701
  12. VITAMIN B12 [Concomitant]
     Active Substance: CYANOCOBALAMIN
     Indication: Vitamin B12 deficiency
     Route: 048
     Dates: start: 20180510
  13. BACLOFEN [Concomitant]
     Active Substance: BACLOFEN
     Route: 048
     Dates: start: 20150209
  14. BACLOFEN [Concomitant]
     Active Substance: BACLOFEN
     Dates: start: 20081118, end: 20150208
  15. ATORVASTATIN [Concomitant]
     Active Substance: ATORVASTATIN
     Indication: Hypertension
     Route: 048
     Dates: start: 202007
  16. PRAMIPEXOLE [Concomitant]
     Active Substance: PRAMIPEXOLE
     Route: 048
     Dates: start: 20081118
  17. RAMIPRIL [Concomitant]
     Active Substance: RAMIPRIL
     Indication: Hypertension
     Route: 048
     Dates: start: 202007
  18. ATIVAN [Concomitant]
     Active Substance: LORAZEPAM
     Indication: Magnetic resonance imaging
     Route: 048
     Dates: start: 20201116
  19. ATIVAN [Concomitant]
     Active Substance: LORAZEPAM
     Indication: Anxiety
  20. BENADRYL [Concomitant]
     Active Substance: DIPHENHYDRAMINE HYDROCHLORIDE
     Dosage: NEXT INFUSION ON: 02/JAN/2014, 02/JUN/2014, 02/NOV/2015, 04/JUL/2013, 04/JUL/2019, 06/OCT/2016, 07/M
     Dates: start: 20141201, end: 20141201
  21. METHYLPREDNISOLONE [Concomitant]
     Active Substance: METHYLPREDNISOLONE
     Dosage: NEXT INFUSION ON: 02/JAN/2014, 02/JUN/2014, 02/NOV/2015, 04/JUL/2013, 04/JUL/2019, 06/OCT/2016, 07/M
     Dates: start: 20141201, end: 20141201
  22. ACIDOPHILUS [Concomitant]
     Active Substance: LACTOBACILLUS ACIDOPHILUS
     Dosage: 2 CAPSULES
     Dates: start: 201809
  23. ATIVAN [Concomitant]
     Active Substance: LORAZEPAM
     Indication: Magnetic resonance imaging
     Dates: start: 20201116
  24. ATIVAN [Concomitant]
     Active Substance: LORAZEPAM
     Indication: Anxiety
  25. PRAMIPEXOLE [Concomitant]
     Active Substance: PRAMIPEXOLE
     Dates: start: 20081118
  26. VITAMIN B12 [Concomitant]
     Active Substance: CYANOCOBALAMIN
     Indication: Vitamin B12 deficiency
     Dates: start: 20180510
  27. CHOLECALCIFEROL [Concomitant]
     Active Substance: CHOLECALCIFEROL
     Indication: Vitamin supplementation
     Dates: start: 2007
  28. ACETAMINOPHEN [Concomitant]
     Active Substance: ACETAMINOPHEN
     Indication: Cellulitis
     Dates: start: 20120730, end: 20120730
  29. ACETAMINOPHEN [Concomitant]
     Active Substance: ACETAMINOPHEN
     Indication: Pyrexia
     Dosage: NEXT DOSE ON: 07/APR/2022, 21/OCT/2021, 22/SEP/2022, 09/JUN/2016
     Dates: start: 20210503, end: 20210503
  30. ACETAMINOPHEN [Concomitant]
     Active Substance: ACETAMINOPHEN
     Indication: Headache
     Dosage: 02/JAN/2014, 02/JUN/2014, 02/NOV/2015, 04/JUL/2013, 04/JUL/2019, 06/OCT/2016, 07/MAY/2015, 08/JUN/20
     Dates: start: 20141201, end: 20141201
  31. ACETAMINOPHEN [Concomitant]
     Active Substance: ACETAMINOPHEN
     Dates: start: 20120127, end: 20120202
  32. CEFPROZIL [Concomitant]
     Active Substance: CEFPROZIL
     Dates: start: 20220113

REACTIONS (1)
  - COVID-19 pneumonia [Recovered/Resolved]

NARRATIVE: CASE EVENT DATE: 20221201
